FAERS Safety Report 22612874 (Version 1)
Quarter: 2023Q2

REPORT INFORMATION
  Report Type: Spontaneous
  Country: US (occurrence: US)
  Receive Date: 20230617
  Receipt Date: 20230617
  Transmission Date: 20230721
  Serious: No
  Sender: FDA-Public Use
  Company Number: US-SANOFI-01649636

PATIENT
  Age: 82 Year
  Sex: Male

DRUGS (1)
  1. TOUJEO [Suspect]
     Active Substance: INSULIN GLARGINE
     Indication: Type 2 diabetes mellitus
     Dosage: 50 UNITS QD AND DRUG TREATMENT DURATION:FOR YEARS

REACTIONS (2)
  - Dyspnoea [Unknown]
  - Amnesia [Unknown]
